FAERS Safety Report 4418087-9 (Version None)
Quarter: 2004Q3

REPORT INFORMATION
  Report Type: 
  Country: None (occurrence: None)
  Receive Date: 20040730
  Receipt Date: 20040713
  Transmission Date: 20050211
  Serious: Yes (Hospitalization)
  Sender: FDA-Public Use
  Company Number: FR-JNJFOC-20040607719

PATIENT
  Age: 87 Year
  Sex: Female
  Weight: 56 kg

DRUGS (11)
  1. RISPERDAL [Suspect]
     Indication: HALLUCINATION
     Dosage: 0.5 MG, 2 IN 1 DAY, ORAL : 8 MG, IN 1 DAY, ORAL : 16 MG, 1 IN 1 DAY, ORAL
     Route: 048
     Dates: start: 20040415, end: 20040522
  2. RISPERDAL [Suspect]
     Indication: HALLUCINATION
     Dosage: 0.5 MG, 2 IN 1 DAY, ORAL : 8 MG, IN 1 DAY, ORAL : 16 MG, 1 IN 1 DAY, ORAL
     Route: 048
     Dates: start: 20040301
  3. REMINYL [Suspect]
     Indication: DEMENTIA ALZHEIMER'S TYPE
     Dosage: 4 MG, IN 1 DAY, ORAL  : 40 MG, 1 IN 1 DAY
     Route: 048
     Dates: start: 20010101
  4. LASIX [Concomitant]
  5. ALDACTONE [Concomitant]
  6. ASPIRIN [Concomitant]
  7. ATORVASTATIN CALCIUM [Concomitant]
  8. VASTAREL (TRIMETAZIDINE HYDROCHLORIDE) [Concomitant]
  9. CITALOPRAM HYDROBROMIDE [Concomitant]
  10. EQUANIL [Concomitant]
  11. OMEPRAZOLE [Concomitant]

REACTIONS (7)
  - ANXIETY [None]
  - FACE OEDEMA [None]
  - HALLUCINATION [None]
  - HYPERTONIA [None]
  - PYREXIA [None]
  - SOMNOLENCE [None]
  - UROSEPSIS [None]
